FAERS Safety Report 7640706-4 (Version None)
Quarter: 2011Q3

REPORT INFORMATION
  Report Type: 
  Country: None (occurrence: None)
  Receive Date: 20110728
  Receipt Date: 20110714
  Transmission Date: 20111222
  Serious: Yes (Other)
  Sender: FDA-Public Use
  Company Number: DE-RANBAXY-2011RR-46272

PATIENT
  Age: 16 Year

DRUGS (4)
  1. DICLOFENAC SODIUM [Suspect]
     Indication: ALLERGY TEST
     Route: 048
  2. ASPIRIN [Suspect]
     Indication: ALLERGY TEST
     Route: 048
  3. IBUPROFEN [Suspect]
     Indication: ALLERGY TEST
     Route: 048
  4. ACETAMINOPHEN [Concomitant]
     Indication: PRODUCT USED FOR UNKNOWN INDICATION
     Route: 065

REACTIONS (3)
  - ANGIOEDEMA [None]
  - URTICARIA [None]
  - DRUG HYPERSENSITIVITY [None]
